FAERS Safety Report 10737938 (Version 1)
Quarter: 2015Q1

REPORT INFORMATION
  Report Type: Spontaneous
  Country: US (occurrence: US)
  Receive Date: 20150126
  Receipt Date: 20150126
  Transmission Date: 20150721
  Serious: No
  Sender: FDA-Public Use
  Company Number: US-SA-2014SA155344

PATIENT
  Age: 79 Year
  Sex: Female
  Weight: 88.9 kg

DRUGS (13)
  1. LISINOPRIL. [Suspect]
     Active Substance: LISINOPRIL
     Dosage: STRENGTH: 40 MG
     Route: 048
  2. ADVAIR DISKUS [Concomitant]
     Active Substance: FLUTICASONE PROPIONATE\SALMETEROL XINAFOATE
     Dosage: 250-50MCG/DOSE AERO POW SR ACT ONE INHALATION TWO TIMES DAILY
     Route: 055
  3. HYDRALAZINE [Suspect]
     Active Substance: HYDRALAZINE HYDROCHLORIDE
     Dosage: STREBGTH: 100 MG
     Route: 048
  4. ALBUTEROL SULFATE W/IPRATROPIUM BROMIDE [Concomitant]
     Active Substance: ALBUTEROL SULFATE\IPRATROPIUM BROMIDE
     Dosage: 0.5-2.5 (3)MG/3ML SOLUTION INHALE 1 VIAL VIA NEBULIZER INHALATION FOUR TIMES DAILY
  5. ECOTRIN [Concomitant]
     Active Substance: ASPIRIN
     Route: 048
  6. NASONEX [Concomitant]
     Active Substance: MOMETASONE FUROATE
     Dosage: 50MCG/ACT SUSPENSION INHALE 1 SPRAV EACH NOSTRIL NASAL DAILY
  7. LASIX [Suspect]
     Active Substance: FUROSEMIDE
     Dosage: DOSE AND DAILY DOSE: ONE AND HALF TABLET
     Route: 048
  8. ATENOLOL. [Suspect]
     Active Substance: ATENOLOL
     Dosage: STRENGTH: 100 MG
     Route: 048
  9. CELEBREX [Concomitant]
     Active Substance: CELECOXIB
     Route: 048
  10. PROAIR HFA [Concomitant]
     Active Substance: ALBUTEROL SULFATE
     Dosage: 108 (90 BASE)MCG/ACT AEROSOL SOLN INHALE 2 PUFFS INHALATION EVE^RY FOUR HOURS, AS NEEDED
  11. METHOCARBAMOL. [Concomitant]
     Active Substance: METHOCARBAMOL
     Route: 048
  12. IRBESARTAN. [Suspect]
     Active Substance: IRBESARTAN
     Dosage: STRENGTH: 300 MG
     Route: 048
  13. NORVASC [Suspect]
     Active Substance: AMLODIPINE BESYLATE
     Dosage: STRENGTH: 5 MG
     Route: 048

REACTIONS (2)
  - Gait disturbance [Unknown]
  - Blood pressure increased [Unknown]

NARRATIVE: CASE EVENT DATE: 20140304
